FAERS Safety Report 16661603 (Version 4)
Quarter: 2019Q4

REPORT INFORMATION
  Report Type: Report from Study
  Country: US (occurrence: US)
  Receive Date: 20190802
  Receipt Date: 20191204
  Transmission Date: 20200122
  Serious: Yes (Hospitalization, Other)
  Sender: FDA-Public Use
  Company Number: US-ACTELION-A-NJ2019-193672

PATIENT
  Age: 32 Year
  Sex: Female

DRUGS (3)
  1. LATUDA [Suspect]
     Active Substance: LURASIDONE HYDROCHLORIDE
     Indication: ANXIETY
     Route: 065
  2. OPSUMIT [Suspect]
     Active Substance: MACITENTAN
     Indication: PULMONARY ARTERIAL HYPERTENSION
     Dosage: 10 MG, QD
     Route: 048
     Dates: start: 20180919
  3. TADALAFIL. [Concomitant]
     Active Substance: TADALAFIL

REACTIONS (10)
  - Anxiety [Unknown]
  - Cerebrovascular accident [Unknown]
  - Headache [Not Recovered/Not Resolved]
  - Dyspnoea [Unknown]
  - Catheter site inflammation [Unknown]
  - Tachycardia [Unknown]
  - Diarrhoea [Not Recovered/Not Resolved]
  - Palpitations [Unknown]
  - Catheter site pain [Unknown]
  - Nausea [Not Recovered/Not Resolved]

NARRATIVE: CASE EVENT DATE: 20190715
